FAERS Safety Report 8041102-0 (Version None)
Quarter: 2012Q1

REPORT INFORMATION
  Report Type: 
  Country: None (occurrence: None)
  Receive Date: 20120112
  Receipt Date: 20120109
  Transmission Date: 20120608
  Serious: Yes (Hospitalization)
  Sender: FDA-Public Use
  Company Number: US-CELGENEUS-163-21880-12010725

PATIENT
  Sex: Female
  Weight: 78.1 kg

DRUGS (3)
  1. DEXAMETHASONE TAB [Suspect]
     Indication: MULTIPLE MYELOMA
     Dosage: 4 MILLIGRAM
     Route: 065
     Dates: start: 20111124
  2. DEXAMETHASONE TAB [Suspect]
     Dosage: 40 MILLIGRAM
     Route: 065
  3. REVLIMID [Suspect]
     Indication: MULTIPLE MYELOMA
     Dosage: 10 MILLIGRAM
     Route: 048
     Dates: start: 20111124

REACTIONS (2)
  - CARDIAC VALVE DISEASE [None]
  - CARDIAC FAILURE [None]
